FAERS Safety Report 5914730-3 (Version None)
Quarter: 2008Q4

REPORT INFORMATION
  Report Type: 
  Country: None (occurrence: None)
  Receive Date: 20081010
  Receipt Date: 20081007
  Transmission Date: 20090506
  Serious: Yes (Death)
  Sender: FDA-Public Use
  Company Number: JP-JNJFOC-20080900690

PATIENT
  Sex: Female
  Weight: 44 kg

DRUGS (7)
  1. ITRIZOLE [Suspect]
     Indication: FEBRILE NEUTROPENIA
     Route: 041
  2. FAMOTIDINE [Suspect]
     Indication: PROPHYLAXIS
     Route: 048
  3. DENOSINE [Suspect]
     Indication: GRAFT VERSUS HOST DISEASE
     Route: 041
  4. PROGRAF [Suspect]
     Indication: GRAFT VERSUS HOST DISEASE
     Route: 041
  5. ACYCLOVIR [Concomitant]
     Indication: PROPHYLAXIS
     Route: 048
  6. ALBUMIN (HUMAN) [Concomitant]
     Indication: PLATELET COUNT DECREASED
     Route: 042
  7. SOLU-MEDROL [Concomitant]
     Indication: GRAFT VERSUS HOST DISEASE
     Route: 042

REACTIONS (4)
  - BLOOD PRESSURE DECREASED [None]
  - FEBRILE NEUTROPENIA [None]
  - GRAFT VERSUS HOST DISEASE [None]
  - HEPATIC FAILURE [None]
